FAERS Safety Report 7775020-X (Version None)
Quarter: 2011Q3

REPORT INFORMATION
  Report Type: 
  Country: None (occurrence: None)
  Receive Date: 20110923
  Receipt Date: 20110919
  Transmission Date: 20111222
  Serious: Yes (Hospitalization)
  Sender: FDA-Public Use
  Company Number: US-ABBOTT-11P-163-0856284-00

PATIENT
  Sex: Male
  Weight: 88.984 kg

DRUGS (2)
  1. UNKNOWN HIGH BLOOD PRESSURE MEDICATION [Concomitant]
     Indication: HYPERTENSION
  2. HUMIRA [Suspect]
     Indication: PSORIASIS
     Dates: start: 20090101

REACTIONS (2)
  - INTERVERTEBRAL DISC PROTRUSION [None]
  - CORONARY ARTERIAL STENT INSERTION [None]
